FAERS Safety Report 20586314 (Version 1)
Quarter: 2022Q1

REPORT INFORMATION
  Report Type: Spontaneous
  Country: US (occurrence: US)
  Receive Date: 20220313
  Receipt Date: 20220313
  Transmission Date: 20220423
  Serious: No
  Sender: FDA-Public Use
  Company Number: US-JNJFOC-20220310238

PATIENT

DRUGS (1)
  1. ZYRTEC [Suspect]
     Active Substance: CETIRIZINE HYDROCHLORIDE
     Indication: Sinus congestion
     Dosage: MIGHT HAVE TAKEN AN HOUR AGO, BUT I DON^T REMEMBER TAKING IT. HAD WRITTEN DOWN ON MY SHEET THAT I T
     Route: 065
     Dates: start: 20220302

REACTIONS (2)
  - Overdose [Unknown]
  - Product use in unapproved indication [Unknown]

NARRATIVE: CASE EVENT DATE: 20220302
